FAERS Safety Report 7055129-9 (Version None)
Quarter: 2010Q4

REPORT INFORMATION
  Report Type: 
  Country: None (occurrence: None)
  Receive Date: 20101020
  Receipt Date: 20101020
  Transmission Date: 20110411
  Serious: No
  Sender: FDA-Public Use
  Company Number: None

PATIENT
  Sex: Female
  Weight: 9.4 kg

DRUGS (6)
  1. PEG-L-ASPARAGINASE (PEGASPARGASE, ONCASPAR) [Suspect]
     Dosage: 1150 IU
     Dates: end: 20100823
  2. PREDNISONE [Suspect]
     Dosage: 391 MG
     Dates: end: 20100902
  3. VINCRISTINE SULFATE [Suspect]
     Dosage: 1.4 MG
     Dates: end: 20100827
  4. CYTARABINE [Suspect]
     Dosage: 30 MG
     Dates: end: 20100820
  5. DAUNORUBICIN HCL [Suspect]
     Dosage: 23 MG
     Dates: end: 20100827
  6. METHOTREXATE [Suspect]
     Dosage: 8 MG
     Dates: end: 20100827

REACTIONS (2)
  - BLOOD GLUCOSE INCREASED [None]
  - DRUG RESISTANCE [None]
